FAERS Safety Report 16944452 (Version 1)
Quarter: 2019Q4

REPORT INFORMATION
  Report Type: Spontaneous
  Country: NL (occurrence: NL)
  Receive Date: 20191022
  Receipt Date: 20191022
  Transmission Date: 20200122
  Serious: Yes (Life-Threatening, Other)
  Sender: FDA-Public Use
  Company Number: NL-SA-2019SA259248

PATIENT
  Sex: Male

DRUGS (4)
  1. DEPAKINE CHRONO [Concomitant]
     Active Substance: VALPROATE SODIUM
     Indication: ATYPICAL BENIGN PARTIAL EPILEPSY
     Dosage: 1X 3X 500 MG
     Route: 065
     Dates: start: 20060101
  2. RIVOTRIL [Concomitant]
     Active Substance: CLONAZEPAM
     Indication: RESTLESS LEGS SYNDROME
     Dosage: 1 X DAY
     Route: 065
  3. TOUJEO [Suspect]
     Active Substance: INSULIN GLARGINE
     Indication: TYPE 2 DIABETES MELLITUS
     Dosage: UNK UNK, QD
     Route: 065
     Dates: start: 20190903, end: 20190916
  4. DIPHANTOINE Z [Concomitant]
     Indication: ATYPICAL BENIGN PARTIAL EPILEPSY
     Dosage: 3X 92 MG
     Route: 065
     Dates: start: 20080101

REACTIONS (8)
  - Confusional state [Unknown]
  - Nausea [Unknown]
  - Blood glucose increased [Unknown]
  - Depressed level of consciousness [Unknown]
  - Dyspnoea [Unknown]
  - Tinnitus [Unknown]
  - Visual impairment [Unknown]
  - Drug ineffective [Unknown]
